FAERS Safety Report 14309430 (Version 2)
Quarter: 2018Q1

REPORT INFORMATION
  Report Type: Spontaneous
  Country: IT (occurrence: IT)
  Receive Date: 20171220
  Receipt Date: 20180104
  Transmission Date: 20180509
  Serious: Yes (Hospitalization)
  Sender: FDA-Public Use
  Company Number: IT-TEVA-2017-IT-836972

PATIENT
  Age: 37 Year
  Sex: Female

DRUGS (1)
  1. CETIRIZINE [Suspect]
     Active Substance: CETIRIZINE HYDROCHLORIDE
     Dosage: AS NECESSARY
     Route: 048
     Dates: start: 20170806, end: 20170806

REACTIONS (3)
  - Cognitive disorder [Unknown]
  - Vertigo [Unknown]
  - Sopor [Unknown]

NARRATIVE: CASE EVENT DATE: 20170806
